FAERS Safety Report 8623675-X (Version None)
Quarter: 2012Q3

REPORT INFORMATION
  Report Type: 
  Country: None (occurrence: None)
  Receive Date: 20120827
  Receipt Date: 20120822
  Transmission Date: 20120928
  Serious: Yes (Hospitalization, Other)
  Sender: FDA-Public Use
  Company Number: US-PFIZER INC-2012207164

PATIENT
  Age: 65 Year
  Sex: Male

DRUGS (7)
  1. HALOPERIDOL LACTATE [Interacting]
     Dosage: UNK
  2. ATIVAN [Interacting]
     Dosage: UNK
  3. OXYCODONE [Interacting]
     Dosage: UNK
  4. VALIUM [Interacting]
     Dosage: UNK
  5. OXYCONTIN [Interacting]
     Dosage: UNK
  6. XANAX [Suspect]
     Dosage: UNK
  7. VERSED [Interacting]
     Dosage: UNK

REACTIONS (7)
  - PSYCHOTIC DISORDER [None]
  - DRUG INTERACTION [None]
  - JUDGEMENT IMPAIRED [None]
  - SOMNAMBULISM [None]
  - AGGRESSION [None]
  - THINKING ABNORMAL [None]
  - AMNESIA [None]
